FAERS Safety Report 9195375 (Version 1)
Quarter: 2013Q1

REPORT INFORMATION
  Report Type: Spontaneous
  Country: None (occurrence: US)
  Receive Date: 20130328
  Receipt Date: 20130328
  Transmission Date: 20140127
  Serious: No
  Sender: FDA-Public Use
  Company Number: US-ALLERGAN-1216225US

PATIENT
  Sex: Female

DRUGS (3)
  1. LUMIGAN [Suspect]
     Indication: INTRAOCULAR PRESSURE INCREASED
     Dosage: 2 GTT, QD
     Route: 047
     Dates: end: 20121120
  2. MICARDIS [Concomitant]
     Indication: HYPERTENSION
     Dosage: UNK UNK, QD
  3. UNSPECIFIED STATIN [Concomitant]
     Indication: HYPERCHOLESTEROLAEMIA
     Dosage: UNK, QD

REACTIONS (3)
  - Local swelling [Recovered/Resolved]
  - Eye swelling [Recovered/Resolved]
  - Eye swelling [Recovered/Resolved]
